FAERS Safety Report 4786748-8 (Version None)
Quarter: 2005Q4

REPORT INFORMATION
  Report Type: 
  Country: None (occurrence: None)
  Receive Date: 20051003
  Receipt Date: 20051003
  Transmission Date: 20060501
  Serious: Yes (Life-Threatening, Hospitalization)
  Sender: FDA-Public Use
  Company Number: None

PATIENT
  Age: 22 Year
  Sex: Female
  Weight: 81.6475 kg

DRUGS (1)
  1. AMBIEN [Suspect]
     Indication: INSOMNIA
     Dosage: AT BEDTIME PO
     Route: 048
     Dates: start: 20050714, end: 20050715

REACTIONS (4)
  - ANAPHYLACTIC REACTION [None]
  - CONDITION AGGRAVATED [None]
  - FOOD ALLERGY [None]
  - GASTRIC DISORDER [None]
